FAERS Safety Report 8990715 (Version 2)
Quarter: 2013Q1

REPORT INFORMATION
  Report Type: Spontaneous
  Country: US (occurrence: US)
  Receive Date: 20121228
  Receipt Date: 20130220
  Transmission Date: 20140127
  Serious: No
  Sender: FDA-Public Use
  Company Number: US-PFIZER INC-2012329751

PATIENT
  Sex: Male

DRUGS (1)
  1. ADVIL CONGESTION RELIEF [Suspect]
     Dosage: UNK
     Route: 048

REACTIONS (1)
  - Drug ineffective [Unknown]
